FAERS Safety Report 23757807 (Version 2)
Quarter: 2024Q2

REPORT INFORMATION
  Report Type: Spontaneous
  Country: US (occurrence: US)
  Receive Date: 20240418
  Receipt Date: 20240530
  Transmission Date: 20240716
  Serious: Yes (Hospitalization)
  Sender: FDA-Public Use
  Company Number: US-Indivior Limited-INDV-144114-2024

PATIENT

DRUGS (2)
  1. PERSERIS [Suspect]
     Active Substance: RISPERIDONE
     Indication: Schizophrenia
     Dosage: 120 MILLIGRAM, QMO
     Route: 058
     Dates: start: 20240128
  2. PERSERIS [Suspect]
     Active Substance: RISPERIDONE

REACTIONS (1)
  - Schizophrenia [Unknown]
